FAERS Safety Report 9303485 (Version 1)
Quarter: 2013Q2

REPORT INFORMATION
  Report Type: Spontaneous
  Country: US (occurrence: US)
  Receive Date: 20130522
  Receipt Date: 20130522
  Transmission Date: 20140414
  Serious: Yes (Hospitalization)
  Sender: FDA-Public Use
  Company Number: US-ELI_LILLY_AND_COMPANY-US201303010097

PATIENT
  Age: 72 Year
  Sex: Female

DRUGS (1)
  1. FORTEO [Suspect]
     Indication: OSTEOPOROSIS
     Dosage: UNK, QD
     Route: 065
     Dates: start: 20130311

REACTIONS (8)
  - Cerebrovascular accident [Unknown]
  - Eye haemorrhage [Unknown]
  - Blindness transient [Unknown]
  - Gait disturbance [Unknown]
  - Blood pressure decreased [Unknown]
  - Malaise [Unknown]
  - Dizziness [Unknown]
  - Nausea [Unknown]
